FAERS Safety Report 4934857-2 (Version None)
Quarter: 2006Q1

REPORT INFORMATION
  Report Type: 
  Country: None (occurrence: None)
  Receive Date: 20060302
  Receipt Date: 20060217
  Transmission Date: 20060701
  Serious: Yes (Life-Threatening, Other)
  Sender: FDA-Public Use
  Company Number: 2006023106

PATIENT
  Age: 74 Year
  Sex: Male

DRUGS (10)
  1. CELEBREX [Suspect]
     Indication: ILL-DEFINED DISORDER
     Dosage: 400 MG (200 MG, 2 IN 1 D)
  2. ALBYL-E (ACETYLSALICYLIC ACID, MAGNESIUM OXIDE) [Suspect]
     Indication: CEREBROVASCULAR ACCIDENT
     Dosage: 160 MG (160 MG, 1 IN 1 D)
     Dates: start: 20020901
  3. WARFARIN SODIUM [Suspect]
     Indication: CEREBROVASCULAR ACCIDENT
     Dosage: DOSAGE ACCORDING TO INR
     Dates: start: 20020901
  4. PRAVACHOL [Concomitant]
  5. RAMIPRIL [Concomitant]
  6. BUMETANIDE [Concomitant]
  7. DIURAL (FUROSEMIDE) [Concomitant]
  8. PARALGIN FORTE (CODEINE PHOSPHATE, PARACETAMOL) [Concomitant]
  9. ZYPREXA [Concomitant]
  10. TRIMETHOPRIM [Concomitant]

REACTIONS (4)
  - ABDOMINAL PAIN [None]
  - DRUG INTERACTION [None]
  - HAEMATEMESIS [None]
  - INTRAVENTRICULAR HAEMORRHAGE [None]
